FAERS Safety Report 17734086 (Version 3)
Quarter: 2020Q3

REPORT INFORMATION
  Report Type: Spontaneous
  Country: US (occurrence: US)
  Receive Date: 20200501
  Receipt Date: 20200813
  Transmission Date: 20201102
  Serious: No
  Sender: FDA-Public Use
  Company Number: US-PFIZER INC-2017169671

PATIENT
  Age: 44 Year
  Sex: Female
  Weight: 59.86 kg

DRUGS (11)
  1. LYRICA [Suspect]
     Active Substance: PREGABALIN
     Dosage: 100 MG, 3X/DAY [1 CAPSULE THREE TIMES A DAY 90 DAYS]
     Route: 048
  2. URECHOLINE [Concomitant]
     Active Substance: BETHANECHOL CHLORIDE
     Dosage: 50 MG, 4X/DAY
     Route: 048
  3. LO LOESTRIN FE [Concomitant]
     Active Substance: ETHINYL ESTRADIOL\NORETHINDRONE ACETATE
     Dosage: UNK, 1X/DAY, [NORETHISTERONE ACETATE: 1 MG]/[ETHINYLESTRADIOL: 10 MCG]/[FERROUS FUMARATE: 10 MCG]
     Route: 048
  4. LYRICA [Suspect]
     Active Substance: PREGABALIN
     Dosage: 100 MG, 3X/DAY
     Route: 048
  5. LEVOTHYROXINE SODIUM. [Concomitant]
     Active Substance: LEVOTHYROXINE SODIUM
     Dosage: 50 UG, 1X/DAY
     Route: 048
  6. LYRICA [Suspect]
     Active Substance: PREGABALIN
     Dosage: UNK
  7. LYRICA [Suspect]
     Active Substance: PREGABALIN
     Indication: LUMBAR RADICULOPATHY
     Dosage: 75 MG, 2X/DAY
     Route: 048
  8. LYRICA [Suspect]
     Active Substance: PREGABALIN
     Dosage: 1 DF, UNK [1 CAPSULE BY MOUTH IN THE MORNING AND NIGHT, 12 HOURS APART]
     Route: 048
  9. TRIAMCINOLONE ACETONIDE. [Concomitant]
     Active Substance: TRIAMCINOLONE ACETONIDE
     Dosage: UNK UNK, 2X/DAY, (1 APPLICATION TO AFFECTED AREA/ 45 GRAMS)
     Route: 061
  10. NEURONTIN [Concomitant]
     Active Substance: GABAPENTIN
     Dosage: 300 MG, AS NEEDED, (300 MG 1?2 CAPSULE/THREE TIMES A DAY)
     Route: 048
  11. LYRICA [Suspect]
     Active Substance: PREGABALIN
     Indication: CAUDA EQUINA SYNDROME
     Dosage: 100 MG, 3X/DAY (1 CAPSULE 3 TIMES A DAY)
     Route: 048

REACTIONS (2)
  - Intentional product use issue [Unknown]
  - Limb injury [Unknown]
